FAERS Safety Report 14176477 (Version 2)
Quarter: 2017Q4

REPORT INFORMATION
  Report Type: Spontaneous
  Country: JP (occurrence: JP)
  Receive Date: 20171109
  Receipt Date: 20171220
  Transmission Date: 20180321
  Serious: Yes (Other)
  Sender: FDA-Public Use
  Company Number: PHHY2017JP165145

PATIENT
  Age: 9 Year
  Sex: Female

DRUGS (1)
  1. PAZOPANIB [Suspect]
     Active Substance: PAZOPANIB
     Indication: CLEAR CELL SARCOMA OF SOFT TISSUE
     Dosage: 450 MG/M2, QD
     Route: 065

REACTIONS (8)
  - Drug administered to patient of inappropriate age [Unknown]
  - Anaemia [Unknown]
  - Tumour haemorrhage [Unknown]
  - Clear cell sarcoma of soft tissue [Unknown]
  - Malignant neoplasm progression [Unknown]
  - Hypothyroidism [Unknown]
  - Headache [Unknown]
  - Nausea [Unknown]
